FAERS Safety Report 19092954 (Version 1)
Quarter: 2021Q2

REPORT INFORMATION
  Report Type: Spontaneous
  Country: US (occurrence: US)
  Receive Date: 20210405
  Receipt Date: 20210405
  Transmission Date: 20210717
  Serious: Yes (Death, Hospitalization)
  Sender: FDA-Public Use
  Company Number: US-MYLANLABS-2021M1019782

PATIENT
  Age: 65 Year
  Sex: Female

DRUGS (4)
  1. INSULIN [Concomitant]
     Active Substance: INSULIN NOS
     Indication: TOXICITY TO VARIOUS AGENTS
     Dosage: CONTINUOUS IV INFUSION OF HIGH?DOSE INSULIN
     Route: 042
  2. DEXTROSE. [Concomitant]
     Active Substance: DEXTROSE
     Indication: TOXICITY TO VARIOUS AGENTS
     Dosage: UNK; CONTINUOUS INFUSION
  3. VERAPAMIL [Suspect]
     Active Substance: VERAPAMIL HYDROCHLORIDE
     Dosage: INGESTED 10 TO 20 TABLETS OF VERAPAMIL
     Route: 048
  4. FAT EMULSION NOS [Suspect]
     Active Substance: EGG PHOSPHOLIPIDS\SAFFLOWER OIL\SOYBEAN OIL
     Indication: TOXICITY TO VARIOUS AGENTS
     Dosage: UNK (INFUSION)

REACTIONS (5)
  - Cardiogenic shock [Fatal]
  - Toxicity to various agents [Fatal]
  - Mental disorder [Fatal]
  - Overdose [Fatal]
  - Unresponsive to stimuli [Fatal]
